FAERS Safety Report 7250541-7 (Version None)
Quarter: 2011Q1

REPORT INFORMATION
  Report Type: 
  Country: None (occurrence: None)
  Receive Date: 20110128
  Receipt Date: 20110124
  Transmission Date: 20110831
  Serious: Yes (Death, Hospitalization)
  Sender: FDA-Public Use
  Company Number: PHHY2009US66888

PATIENT
  Sex: Female
  Weight: 52 kg

DRUGS (1)
  1. EXJADE [Suspect]
     Indication: MYELODYSPLASTIC SYNDROME
     Dosage: 250 MG, QD
     Route: 048
     Dates: start: 20090101

REACTIONS (4)
  - RASH ERYTHEMATOUS [None]
  - PNEUMONIA [None]
  - THROMBOSIS [None]
  - NEUTROPENIC SEPSIS [None]
